FAERS Safety Report 8011013-5 (Version None)
Quarter: 2011Q4

REPORT INFORMATION
  Report Type: 
  Country: None (occurrence: None)
  Receive Date: 20111222
  Receipt Date: 20111219
  Transmission Date: 20120403
  Serious: Yes (Death, Hospitalization)
  Sender: FDA-Public Use
  Company Number: LTI2011A00324

PATIENT
  Age: 65 Year
  Sex: Male

DRUGS (1)
  1. PIOGLITAZONE HYDROCHLORIDE/METFORMIN HYDROCHLORIDE [Suspect]
     Indication: TYPE 2 DIABETES MELLITUS
     Dosage: 3 DF (1 DF, 3 IN 1 D) ORAL
     Route: 048
     Dates: start: 20070101, end: 20110401

REACTIONS (11)
  - RENAL FAILURE [None]
  - DIALYSIS [None]
  - BLADDER TRANSITIONAL CELL CARCINOMA METASTATIC [None]
  - METASTASES TO LUNG [None]
  - URINARY TRACT INFECTION [None]
  - METASTASES TO LYMPH NODES [None]
  - METASTASES TO LIVER [None]
  - DRUG INTOLERANCE [None]
  - MALNUTRITION [None]
  - VASCULAR GRAFT [None]
  - SEPTIC SHOCK [None]
